FAERS Safety Report 9437077 (Version 1)
Quarter: 2013Q3

REPORT INFORMATION
  Report Type: Report from Study
  Country: ES (occurrence: ES)
  Receive Date: 20130802
  Receipt Date: 20130802
  Transmission Date: 20140515
  Serious: Yes (Hospitalization)
  Sender: FDA-Public Use
  Company Number: ES-ASTELLAS-2013EU004153

PATIENT
  Age: 2 Year
  Sex: Male
  Weight: 12 kg

DRUGS (15)
  1. TACROLIMUS GRANULE [Suspect]
     Indication: IMMUNOSUPPRESSION
     Dosage: 1.8 MG, Q12 HOURS
     Route: 048
     Dates: start: 20130423
  2. DOPAMINE [Concomitant]
     Indication: CARDIOVASCULAR DISORDER
     Dosage: UNK
     Route: 042
     Dates: start: 20130420
  3. MILRINONE [Concomitant]
     Indication: VASODILATATION
     Dosage: UNK
     Route: 042
     Dates: start: 20130420
  4. FUROSEMIDE [Concomitant]
     Indication: DIURETIC THERAPY
     Dosage: UNK
     Route: 042
     Dates: start: 20130420
  5. METAMIZOLE [Concomitant]
     Indication: ANALGESIC THERAPY
     Dosage: UNK
     Route: 042
     Dates: start: 20130420
  6. CYTOTECT [Concomitant]
     Dosage: UNK
     Route: 042
     Dates: start: 20130420
  7. GANCICLOVIR [Concomitant]
     Indication: ANTIVIRAL PROPHYLAXIS
     Dosage: UNK
     Route: 042
     Dates: start: 20130420
  8. SPIRONOLACTONE [Concomitant]
     Indication: DIURETIC THERAPY
     Dosage: UNK
     Route: 065
     Dates: start: 20130421
  9. HYDROCHLOROTHIAZIDE [Concomitant]
     Indication: DIURETIC THERAPY
     Dosage: UNK
     Route: 065
     Dates: start: 20130422
  10. SILDENAFIL [Concomitant]
     Indication: VASODILATION PROCEDURE
     Dosage: UNK
     Route: 065
     Dates: start: 20130422
  11. ACETAZOLAMIDE [Concomitant]
     Indication: DIURETIC THERAPY
     Dosage: UNK
     Route: 048
     Dates: start: 20130423
  12. NYSTATIN [Concomitant]
     Indication: ANTIFUNGAL PROPHYLAXIS
     Dosage: UNK
     Route: 048
     Dates: start: 20130423
  13. PROPANOLOL                         /00030001/ [Concomitant]
     Indication: EXTRASYSTOLES
     Dosage: UNK
     Route: 048
     Dates: start: 20130429
  14. MOVICOL                            /01625101/ [Concomitant]
     Dosage: UNK
     Route: 048
     Dates: start: 20130501
  15. SALBUTAMOL [Concomitant]
     Dosage: UNK
     Route: 055
     Dates: start: 20130427

REACTIONS (1)
  - Diaphragmatic paralysis [Not Recovered/Not Resolved]
